FAERS Safety Report 4964706-8 (Version None)
Quarter: 2006Q2

REPORT INFORMATION
  Report Type: 
  Country: None (occurrence: None)
  Receive Date: 20060406
  Receipt Date: 20050119
  Transmission Date: 20061013
  Serious: Yes (Hospitalization, Other)
  Sender: FDA-Public Use
  Company Number: US-MERCK-0501USA03254

PATIENT
  Sex: Female
  Weight: 80 kg

DRUGS (4)
  1. VIOXX [Suspect]
     Indication: ARTHRITIS
     Route: 048
  2. VIOXX [Suspect]
     Route: 048
  3. VIOXX [Suspect]
     Route: 048
     Dates: start: 20020702, end: 20040901
  4. VIOXX [Suspect]
     Route: 048

REACTIONS (14)
  - BACK DISORDER [None]
  - BACK INJURY [None]
  - BLADDER DISORDER [None]
  - CONTUSION [None]
  - COSTOCHONDRITIS [None]
  - ELECTROCARDIOGRAM ABNORMAL [None]
  - HYPERCHOLESTEROLAEMIA [None]
  - INCONTINENCE [None]
  - MYOCARDIAL INFARCTION [None]
  - OSTEOARTHRITIS [None]
  - OVERDOSE [None]
  - SINUSITIS [None]
  - SOMNOLENCE [None]
  - URINARY TRACT INFECTION [None]
